FAERS Safety Report 16897376 (Version 1)
Quarter: 2019Q4

REPORT INFORMATION
  Report Type: Spontaneous
  Country: IT (occurrence: IT)
  Receive Date: 20191009
  Receipt Date: 20191009
  Transmission Date: 20200122
  Serious: Yes (Other)
  Sender: FDA-Public Use
  Company Number: IT-AUROBINDO-AUR-APL-2019-064701

PATIENT
  Age: 24 Year
  Sex: Female

DRUGS (1)
  1. PARACETAMOL [Suspect]
     Active Substance: ACETAMINOPHEN
     Indication: ABDOMINAL PAIN
     Dosage: 1 DOSAGE FORM, TOTAL
     Route: 042
     Dates: start: 20190910, end: 20190910

REACTIONS (1)
  - Angioedema [Recovering/Resolving]

NARRATIVE: CASE EVENT DATE: 20190910
